FAERS Safety Report 19455686 (Version 1)
Quarter: 2021Q2

REPORT INFORMATION
  Report Type: Spontaneous
  Country: US (occurrence: US)
  Receive Date: 20210623
  Receipt Date: 20210623
  Transmission Date: 20210717
  Serious: Yes (Other)
  Sender: FDA-Public Use
  Company Number: None

PATIENT
  Age: 42 Year
  Sex: Female

DRUGS (1)
  1. GENERIC BUPRENORPHINE/NALOXONE TABS [Suspect]
     Active Substance: BUPRENORPHINE\NALOXONE
     Indication: DRUG DEPENDENCE
     Route: 060
     Dates: start: 20210602

REACTIONS (3)
  - Drug dependence [None]
  - Withdrawal syndrome [None]
  - Drug ineffective [None]

NARRATIVE: CASE EVENT DATE: 20210623
